FAERS Safety Report 8387017-X (Version None)
Quarter: 2012Q2

REPORT INFORMATION
  Report Type: 
  Country: None (occurrence: None)
  Receive Date: 20120525
  Receipt Date: 20120515
  Transmission Date: 20120825
  Serious: Yes (Hospitalization, Other)
  Sender: FDA-Public Use
  Company Number: FR-ACTELION-A-CH2011-48081

PATIENT
  Sex: Female

DRUGS (10)
  1. ASPEGIC 1000 [Suspect]
     Dosage: UNK
     Dates: start: 20120101
  2. TRACLEER [Suspect]
     Indication: DIGITAL ULCER
     Dosage: 125 MG, BID
     Route: 048
     Dates: start: 20101219, end: 20110222
  3. DILTIAZEM HCL [Concomitant]
     Dosage: UNK
     Dates: start: 20110201
  4. NITROGLYCERIN [Concomitant]
  5. MOTILIUM [Concomitant]
     Dosage: UNK
     Dates: start: 20110201
  6. ASPEGIC 1000 [Suspect]
     Dosage: UNK
     Dates: start: 20110201
  7. SIMVASTATIN [Concomitant]
     Dosage: UNK
     Dates: start: 20110201
  8. TRACLEER [Suspect]
     Dosage: 62.5 MG, BID
     Route: 048
     Dates: start: 20101119, end: 20101218
  9. PLAVIX [Suspect]
     Dosage: UNK
     Dates: start: 20110101
  10. NEXIUM [Concomitant]
     Dosage: UNK

REACTIONS (7)
  - OESOPHAGITIS ULCERATIVE [None]
  - MYOCARDIAL INFARCTION [None]
  - CORONARY ARTERIAL STENT INSERTION [None]
  - ANAEMIA [None]
  - DYSPNOEA [None]
  - ANGINA PECTORIS [None]
  - TELANGIECTASIA [None]
